FAERS Safety Report 14747652 (Version 1)
Quarter: 2018Q2

REPORT INFORMATION
  Report Type: Spontaneous
  Country: US (occurrence: US)
  Receive Date: 20180411
  Receipt Date: 20180411
  Transmission Date: 20180711
  Serious: Yes (Hospitalization, Other)
  Sender: FDA-Public Use
  Company Number: US-FLEXION THERAPEUTICS, INC.-2018FLS000014

PATIENT
  Age: 60 Year
  Sex: Male
  Weight: 86.26 kg

DRUGS (2)
  1. ZILRETTA [Suspect]
     Active Substance: TRIAMCINOLONE ACETONIDE
     Indication: OSTEOARTHRITIS
     Route: 014
     Dates: start: 20171228, end: 20171228
  2. SYNVISC-ONE [Suspect]
     Active Substance: HYALURONATE SODIUM
     Indication: ARTHRALGIA
     Dates: start: 201803

REACTIONS (3)
  - Arthralgia [Unknown]
  - Arthritis bacterial [Unknown]
  - Abscess oral [Unknown]

NARRATIVE: CASE EVENT DATE: 2018
